FAERS Safety Report 6381771-4 (Version None)
Quarter: 2009Q3

REPORT INFORMATION
  Report Type: 
  Country: None (occurrence: None)
  Receive Date: 20090930
  Receipt Date: 20090924
  Transmission Date: 20100115
  Serious: Yes (Other)
  Sender: FDA-Public Use
  Company Number: US-RANBAXY-2009US-28224

PATIENT

DRUGS (1)
  1. ISOTRETINOIN [Suspect]
     Indication: ACNE
     Dosage: 40 MG, BID
     Route: 048
     Dates: start: 20070101, end: 20090701

REACTIONS (6)
  - BACK PAIN [None]
  - COAGULOPATHY [None]
  - HAEMATOCHEZIA [None]
  - IMPAIRED WORK ABILITY [None]
  - INJECTION SITE HAEMATOMA [None]
  - NECK PAIN [None]
